FAERS Safety Report 9620651 (Version 1)
Quarter: 2013Q4

REPORT INFORMATION
  Report Type: Report from Study
  Country: CA (occurrence: CA)
  Receive Date: 20131015
  Receipt Date: 20131015
  Transmission Date: 20140711
  Serious: Yes (Hospitalization)
  Sender: FDA-Public Use
  Company Number: CA-ROCHE-1288171

PATIENT
  Age: 70 Year
  Sex: Male

DRUGS (15)
  1. LUCENTIS [Suspect]
     Indication: DIABETIC RETINAL OEDEMA
     Route: 050
     Dates: start: 201309
  2. HUMALOG [Concomitant]
  3. SENNOSIDES A AND B [Concomitant]
  4. BISOPROLOL FUMARATE [Concomitant]
  5. SERTRALINE [Concomitant]
  6. D-TABS [Concomitant]
  7. EURO-CAL [Concomitant]
  8. APO-FUROSEMIDE [Concomitant]
  9. DOMPERIDONE [Concomitant]
  10. ZYLOPRIM [Concomitant]
  11. PANTOPRAZOLE [Concomitant]
  12. ASAPHEN [Concomitant]
  13. ATORVASTATIN [Concomitant]
  14. TRAJENTA [Concomitant]
  15. LEVEMIR [Concomitant]

REACTIONS (2)
  - Bacteraemia [Unknown]
  - Localised infection [Unknown]
